FAERS Safety Report 13939336 (Version 1)
Quarter: 2017Q3

REPORT INFORMATION
  Report Type: Report from Study
  Country: US (occurrence: US)
  Receive Date: 20170906
  Receipt Date: 20170906
  Transmission Date: 20171127
  Serious: Yes (Other)
  Sender: FDA-Public Use
  Company Number: US-ROCHE-1987363

PATIENT

DRUGS (1)
  1. ALTEPLASE. [Suspect]
     Active Substance: ALTEPLASE
     Indication: PULMONARY EMBOLISM
     Dosage: OVER 2 HOURS (50 MG/HOUR)
     Route: 042

REACTIONS (4)
  - Shock [Unknown]
  - Haematocrit decreased [Unknown]
  - Puncture site haemorrhage [Unknown]
  - Mallory-Weiss syndrome [Unknown]
